FAERS Safety Report 8140249-8 (Version None)
Quarter: 2012Q1

REPORT INFORMATION
  Report Type: 
  Country: None (occurrence: None)
  Receive Date: 20120216
  Receipt Date: 20120207
  Transmission Date: 20120608
  Serious: No
  Sender: FDA-Public Use
  Company Number: US-BIOGENIDEC-2012BI005027

PATIENT
  Sex: Male

DRUGS (1)
  1. AVONEX [Suspect]
     Indication: MULTIPLE SCLEROSIS
     Route: 030
     Dates: start: 20100929

REACTIONS (6)
  - MUSCLE SPASMS [None]
  - GAIT DISTURBANCE [None]
  - WEIGHT DECREASED [None]
  - URINARY INCONTINENCE [None]
  - DECREASED APPETITE [None]
  - FAECAL INCONTINENCE [None]
